FAERS Safety Report 6538529-2 (Version None)
Quarter: 2010Q1

REPORT INFORMATION
  Report Type: 
  Country: None (occurrence: None)
  Receive Date: 20100113
  Receipt Date: 20100113
  Transmission Date: 20100710
  Serious: Yes (Hospitalization)
  Sender: FDA-Public Use
  Company Number: None

PATIENT
  Sex: Male
  Weight: 87 kg

DRUGS (7)
  1. ERBITUX [Suspect]
     Indication: DYSPLASIA
     Dosage: 400 MG/M2 IV OVER 2 HOUR
     Route: 042
     Dates: start: 20100105
  2. ERBITUX [Suspect]
     Indication: VOCAL CORD DISORDER
     Dosage: 400 MG/M2 IV OVER 2 HOUR
     Route: 042
     Dates: start: 20100105
  3. LISINOPRIL [Concomitant]
  4. ATENOLOL [Concomitant]
  5. METFORMIN HCL [Concomitant]
  6. GLYBURIDE [Concomitant]
  7. ASPIRIN [Concomitant]

REACTIONS (3)
  - CHEST PAIN [None]
  - CHILLS [None]
  - INFUSION RELATED REACTION [None]
